FAERS Safety Report 9510482 (Version 2)
Quarter: 2013Q3

REPORT INFORMATION
  Report Type: Report from Study
  Country: US (occurrence: US)
  Receive Date: 20130909
  Receipt Date: 20130909
  Transmission Date: 20140515
  Serious: Yes (Hospitalization, Other)
  Sender: FDA-Public Use
  Company Number: US-TAKEDA-TPA2013A06589

PATIENT
  Age: 76 Year
  Sex: Male
  Weight: 98 kg

DRUGS (14)
  1. ALLOPURINOL [Suspect]
     Indication: HYPERURICAEMIA
     Route: 048
     Dates: start: 20110727, end: 20120201
  2. FEBUXOSTAT [Suspect]
     Indication: HYPERURICAEMIA
     Route: 048
     Dates: start: 20110727, end: 20120201
  3. OMEPRAZOLE [Concomitant]
     Indication: GASTROOESOPHAGEAL REFLUX DISEASE
     Route: 048
     Dates: start: 2000
  4. GLUCOSAMINE CHONDROITIN WITH MSM [Concomitant]
     Indication: MEDICAL DIET
     Route: 048
     Dates: start: 2009
  5. NIACIN [Concomitant]
     Indication: HYPERCHOLESTEROLAEMIA
     Route: 048
     Dates: start: 2007
  6. SIMVASTATIN [Concomitant]
     Indication: HYPERCHOLESTEROLAEMIA
     Route: 048
     Dates: start: 2007
  7. RANITIDINE [Concomitant]
     Indication: DYSPEPSIA
     Route: 048
     Dates: start: 2000
  8. CALCIUM [Concomitant]
     Indication: MEDICAL DIET
     Route: 048
     Dates: start: 2009
  9. VITAMIN D3 [Concomitant]
     Indication: VITAMIN D DEFICIENCY
     Route: 048
     Dates: start: 2009
  10. MULTIVITAMIN [Concomitant]
     Indication: MEDICAL DIET
     Route: 048
     Dates: start: 2000
  11. FISH OIL [Concomitant]
     Indication: HYPERCHOLESTEROLAEMIA
     Route: 048
     Dates: start: 2007
  12. ASPIRIN [Concomitant]
     Indication: CARDIOVASCULAR EVENT PROPHYLAXIS
     Route: 048
     Dates: start: 20110810
  13. ASPIRIN [Concomitant]
     Route: 048
     Dates: start: 2007, end: 20110810
  14. LISINOPRIL [Concomitant]
     Indication: HYPERTENSION
     Route: 048
     Dates: start: 20110811

REACTIONS (2)
  - Coronary artery disease [Recovered/Resolved]
  - Cardiac failure congestive [Unknown]
